FAERS Safety Report 21067641 (Version 1)
Quarter: 2022Q3

REPORT INFORMATION
  Report Type: Spontaneous
  Country: CA (occurrence: CA)
  Receive Date: 20220712
  Receipt Date: 20220712
  Transmission Date: 20221027
  Serious: Yes (Other)
  Sender: FDA-Public Use
  Company Number: CA-009507513-2207CAN001889

PATIENT
  Age: 69 Year
  Sex: Male

DRUGS (1)
  1. KEYTRUDA [Suspect]
     Active Substance: PEMBROLIZUMAB
     Indication: Prostate cancer metastatic
     Dosage: UNK

REACTIONS (4)
  - Cardiogenic shock [Recovered/Resolved]
  - Immune-mediated myocarditis [Recovering/Resolving]
  - Ventricular tachycardia [Recovered/Resolved]
  - Product use in unapproved indication [Unknown]
